FAERS Safety Report 6960086-7 (Version None)
Quarter: 2010Q3

REPORT INFORMATION
  Report Type: 
  Country: None (occurrence: None)
  Receive Date: 20100901
  Receipt Date: 20100820
  Transmission Date: 20110219
  Serious: Yes (Hospitalization, Other)
  Sender: FDA-Public Use
  Company Number: PHHY2010MX28761

PATIENT
  Sex: Female

DRUGS (4)
  1. FEMARA [Suspect]
     Indication: BREAST CANCER
     Dosage: 2.5 MG, QD
     Route: 048
     Dates: start: 20060615, end: 20090515
  2. CAPECITABINE [Concomitant]
  3. ZOMETA [Concomitant]
     Dosage: 1 INJECTION MONTHLY
  4. TAXOL [Concomitant]

REACTIONS (6)
  - CALCIUM DEFICIENCY [None]
  - HYPOKALAEMIA [None]
  - MASTECTOMY [None]
  - METASTASES TO BONE [None]
  - METASTASES TO LIVER [None]
  - SYNCOPE [None]
